FAERS Safety Report 7668360-6 (Version None)
Quarter: 2011Q3

REPORT INFORMATION
  Report Type: 
  Country: None (occurrence: None)
  Receive Date: 20110803
  Receipt Date: 20110721
  Transmission Date: 20111222
  Serious: Yes (Hospitalization, Other)
  Sender: FDA-Public Use
  Company Number: AUR-APL-2011-04421

PATIENT
  Age: 60 Year
  Sex: Female

DRUGS (4)
  1. NIFEDIPINE [Concomitant]
  2. METOPROLOL TARTRATE [Concomitant]
  3. ASPIRIN [Concomitant]
  4. AMLODIPINE [Suspect]
     Indication: PRODUCT USED FOR UNKNOWN INDICATION
     Dosage: 20 MG (10 MG, 2 IN 1 D), PER ORAL
     Route: 048

REACTIONS (7)
  - ABDOMINAL PAIN [None]
  - RESPIRATORY RATE INCREASED [None]
  - ABDOMINAL DISTENSION [None]
  - SELF-MEDICATION [None]
  - BLOOD PRESSURE DECREASED [None]
  - VOMITING [None]
  - WRONG DRUG ADMINISTERED [None]
